FAERS Safety Report 5495371-1 (Version None)
Quarter: 2007Q4

REPORT INFORMATION
  Report Type: 
  Country: None (occurrence: None)
  Receive Date: 20071024
  Receipt Date: 20071015
  Transmission Date: 20080405
  Serious: Yes (Other)
  Sender: FDA-Public Use
  Company Number: FR-PFIZER INC-2007087030

PATIENT
  Sex: Female

DRUGS (2)
  1. CHAMPIX [Suspect]
     Indication: SMOKING CESSATION THERAPY
  2. LEVOTHYROX [Concomitant]

REACTIONS (4)
  - EPISTAXIS [None]
  - HAEMATEMESIS [None]
  - HAEMATOCHEZIA [None]
  - NAUSEA [None]
